FAERS Safety Report 21211426 (Version 2)
Quarter: 2022Q3

REPORT INFORMATION
  Report Type: Spontaneous
  Country: JP (occurrence: JP)
  Receive Date: 20220815
  Receipt Date: 20220902
  Transmission Date: 20221026
  Serious: Yes (Hospitalization, Other)
  Sender: FDA-Public Use
  Company Number: JP-BRISTOL-MYERS SQUIBB COMPANY-2022-089517

PATIENT
  Age: 73 Year
  Sex: Female

DRUGS (4)
  1. VIDAZA [Suspect]
     Active Substance: AZACITIDINE
     Indication: Acute myeloid leukaemia
     Route: 065
  2. VIDAZA [Suspect]
     Active Substance: AZACITIDINE
     Dosage: THERAPY STARTED ON NOV-202X
  3. VIDAZA [Suspect]
     Active Substance: AZACITIDINE
     Route: 065
  4. VENETOCLAX [Concomitant]
     Active Substance: VENETOCLAX
     Indication: Acute myeloid leukaemia

REACTIONS (4)
  - Pancytopenia [Unknown]
  - Haemophagocytic lymphohistiocytosis [Unknown]
  - Blood triglycerides increased [Unknown]
  - Serum ferritin increased [Unknown]
